FAERS Safety Report 7012720 (Version 54)
Quarter: 2014Q2

REPORT INFORMATION
  Report Type: Report from Study
  Country: CA (occurrence: CA)
  Receive Date: 20090605
  Receipt Date: 20140625
  Transmission Date: 20141212
  Serious: Yes (Hospitalization, Other)
  Sender: FDA-Public Use
  Company Number: PHHO2005CA07391

PATIENT
  Age: 61 Year
  Sex: Female

DRUGS (18)
  1. SANDOSTATIN LAR [Suspect]
     Indication: ACROMEGALY
     Dosage: 20 MG, EVERY MONTH
     Route: 030
     Dates: start: 20021120
  2. SANDOSTATIN LAR [Suspect]
     Dosage: 30 MG, EVERY MONTH
     Route: 030
  3. SANDOSTATIN LAR [Suspect]
     Dosage: 30 MG, EVERY 4 WEEKS
     Route: 030
  4. TRAZODONE [Concomitant]
     Indication: DEPRESSION
     Dosage: 50 MG, TID
     Route: 048
  5. APO-METFORMIN [Concomitant]
     Indication: DIABETES MELLITUS
     Dosage: 500 MG, TID
     Route: 048
  6. ALTACE [Concomitant]
     Dosage: 5 MG, QD
     Route: 048
  7. ALTACE [Concomitant]
     Dosage: UNK UKN, UNK
     Dates: start: 200502
  8. SIMVASTATIN [Concomitant]
     Indication: BLOOD CHOLESTEROL
     Dosage: 20 MG, QD
     Route: 048
  9. PREMARIN [Concomitant]
     Dosage: 0.625 MG, QD
     Route: 048
  10. SYNTHROID [Concomitant]
     Dosage: 0.115 MG, QD
     Route: 048
  11. APO-ATENOL [Concomitant]
     Indication: BLOOD PRESSURE
     Dosage: 100 MG, QD
     Route: 048
  12. APO-FUROSEMIDE [Concomitant]
     Dosage: 20 MG, QD
     Route: 048
  13. TYLENOL [Concomitant]
     Indication: OSTEITIS DEFORMANS
     Dosage: UNK UKN, UNK
     Route: 048
  14. TYLENOL [Concomitant]
     Indication: OSTEOPOROSIS
  15. ROBAXACET [Concomitant]
     Dosage: UNK UKN, UNK
  16. XANAX [Concomitant]
     Dosage: 0.5 MG, QD
     Route: 048
  17. PENICILLIN [Concomitant]
  18. COVERSIL [Concomitant]
     Indication: HYPERTENSION
     Dosage: UNK UKN, UNK

REACTIONS (28)
  - Pericardial effusion [Unknown]
  - Hypotension [Unknown]
  - Stress [Unknown]
  - Cardiomegaly [Unknown]
  - Lung disorder [Unknown]
  - Pneumonia [Recovering/Resolving]
  - Breast mass [Unknown]
  - Breast pain [Unknown]
  - Blood pressure increased [Unknown]
  - Hyperglycaemia [Unknown]
  - Periarthritis [Unknown]
  - Musculoskeletal pain [Unknown]
  - Injection site swelling [Recovered/Resolved]
  - Insomnia [Unknown]
  - Anxiety [Unknown]
  - Arthralgia [Unknown]
  - Musculoskeletal discomfort [Unknown]
  - Chills [Unknown]
  - Pyrexia [Unknown]
  - Pain [Unknown]
  - Injection site injury [Unknown]
  - Injection site haematoma [Recovering/Resolving]
  - Headache [Unknown]
  - Injection site pain [Recovered/Resolved]
  - Heart rate irregular [Unknown]
  - Alopecia [Unknown]
  - Diarrhoea [Unknown]
  - Fatigue [Unknown]
